FAERS Safety Report 8175367-1 (Version None)
Quarter: 2012Q1

REPORT INFORMATION
  Report Type: 
  Country: None (occurrence: None)
  Receive Date: 20120229
  Receipt Date: 20120228
  Transmission Date: 20120608
  Serious: No
  Sender: FDA-Public Use
  Company Number: US-TEVA-325197USA

PATIENT
  Sex: Female
  Weight: 58.112 kg

DRUGS (3)
  1. PLAN B ONE-STEP [Suspect]
     Indication: POST COITAL CONTRACEPTION
     Dosage: 1.5 MILLIGRAM;
     Route: 048
     Dates: start: 20120206, end: 20120206
  2. UNKNOWN DIURECTIC [Concomitant]
     Indication: PRODUCT USED FOR UNKNOWN INDICATION
  3. PHENTERMINE [Concomitant]
     Indication: WEIGHT DECREASED
     Dates: start: 20110101

REACTIONS (4)
  - VAGINAL HAEMORRHAGE [None]
  - DRUG INEFFECTIVE [None]
  - MENSTRUATION IRREGULAR [None]
  - PREGNANCY AFTER POST COITAL CONTRACEPTION [None]
